FAERS Safety Report 5027120-5 (Version None)
Quarter: 2006Q2

REPORT INFORMATION
  Report Type: 
  Country: None (occurrence: None)
  Receive Date: 20060609
  Receipt Date: 20060523
  Transmission Date: 20061013
  Serious: Yes (Hospitalization, Other)
  Sender: FDA-Public Use
  Company Number: 2006BI005930

PATIENT
  Age: 55 Year
  Sex: Female
  Weight: 76.2043 kg

DRUGS (1)
  1. AVONEX [Suspect]
     Indication: MULTIPLE SCLEROSIS
     Dosage: 30 UG; QW; IM
     Route: 030
     Dates: start: 20030101, end: 20040101

REACTIONS (5)
  - ALOPECIA [None]
  - CEREBROVASCULAR ACCIDENT [None]
  - CHILLS [None]
  - HYPERCOAGULATION [None]
  - NON-HODGKIN'S LYMPHOMA [None]
